FAERS Safety Report 25233161 (Version 1)
Quarter: 2025Q2

REPORT INFORMATION
  Report Type: Report from Study
  Country: US (occurrence: US)
  Receive Date: 20250424
  Receipt Date: 20250424
  Transmission Date: 20250716
  Serious: Yes (Other)
  Sender: SUNOVION
  Company Number: US-SMPA-2025SPA004607

PATIENT

DRUGS (9)
  1. ORGOVYX [Suspect]
     Active Substance: RELUGOLIX
     Indication: Prostate cancer
     Dosage: 360 MG, SINGLE
     Route: 048
     Dates: start: 20250117, end: 20250117
  2. ORGOVYX [Suspect]
     Active Substance: RELUGOLIX
     Dosage: 120 MG, QD
     Route: 048
     Dates: start: 20250118
  3. ALLOPURINOL [Concomitant]
     Active Substance: ALLOPURINOL
     Route: 048
  4. ATORVASTATIN CALCIUM [Concomitant]
     Active Substance: ATORVASTATIN CALCIUM
     Route: 048
  5. FLOMAX [Concomitant]
     Active Substance: TAMSULOSIN HYDROCHLORIDE
     Route: 048
  6. HYDROCHLOROTHIAZIDE [Concomitant]
     Active Substance: HYDROCHLOROTHIAZIDE
     Route: 048
  7. LIPITOR [Concomitant]
     Active Substance: ATORVASTATIN CALCIUM
     Route: 048
  8. LISINOPRIL [Concomitant]
     Active Substance: LISINOPRIL
     Route: 048
  9. METFORMIN HYDROCHLORIDE [Concomitant]
     Active Substance: METFORMIN HYDROCHLORIDE
     Route: 048

REACTIONS (1)
  - Prostatic operation [Unknown]
